FAERS Safety Report 9148488 (Version 1)
Quarter: 2013Q1

REPORT INFORMATION
  Report Type: Spontaneous
  Country: US (occurrence: US)
  Receive Date: 20130308
  Receipt Date: 20130308
  Transmission Date: 20140127
  Serious: No
  Sender: FDA-Public Use
  Company Number: US-009507513-1303USA002886

PATIENT
  Age: 53 Year
  Sex: Male
  Weight: 77.98 kg

DRUGS (3)
  1. BOCEPREVIR [Suspect]
     Indication: CHRONIC HEPATITIS C
     Dosage: 800 MG, TID
     Route: 048
     Dates: start: 20111024, end: 201204
  2. RIBAVIRIN [Suspect]
     Indication: CHRONIC HEPATITIS C
     Dosage: 1200 MG, DAILY DIVIDED DOSE
     Route: 048
     Dates: start: 20110930, end: 20120830
  3. PEGINTERFERON ALFA-2A [Suspect]
     Indication: CHRONIC HEPATITIS C
     Dosage: 180 MICROGRAM, QW
     Route: 058
     Dates: start: 20110930, end: 20120830

REACTIONS (24)
  - Fatigue [Unknown]
  - Influenza [Recovering/Resolving]
  - Bronchitis [Recovering/Resolving]
  - Myalgia [Unknown]
  - Dry skin [Unknown]
  - Pruritus [Unknown]
  - Somnolence [Unknown]
  - Skin ulcer [Unknown]
  - Skin ulcer [Unknown]
  - Skin ulcer [Unknown]
  - Alopecia [Unknown]
  - Decreased appetite [Unknown]
  - Weight decreased [Unknown]
  - Skin disorder [Unknown]
  - Alopecia [Unknown]
  - Skin discolouration [Unknown]
  - Nausea [Unknown]
  - Hair colour changes [Unknown]
  - Myalgia [Unknown]
  - Arthralgia [Unknown]
  - Arthralgia [Unknown]
  - Nasopharyngitis [Unknown]
  - Aphagia [Unknown]
  - Pruritus [Not Recovered/Not Resolved]
